FAERS Safety Report 25302659 (Version 1)
Quarter: 2025Q2

REPORT INFORMATION
  Report Type: Spontaneous
  Country: JP (occurrence: JP)
  Receive Date: 20250512
  Receipt Date: 20250512
  Transmission Date: 20250716
  Serious: Yes (Other)
  Sender: PFIZER
  Company Number: JP-PFIZER INC-PV202500055469

PATIENT
  Age: 75 Year
  Sex: Female

DRUGS (3)
  1. CLINDAMYCIN PHOSPHATE [Suspect]
     Active Substance: CLINDAMYCIN PHOSPHATE
     Indication: Beta haemolytic streptococcal infection
     Dosage: 600 MG, Q8H
  2. AMPICILLIN [Suspect]
     Active Substance: AMPICILLIN
     Indication: Beta haemolytic streptococcal infection
     Dosage: 2G Q6H
  3. CEFAZOLIN [Suspect]
     Active Substance: CEFAZOLIN
     Indication: Beta haemolytic streptococcal infection
     Dosage: 1 G, Q8H

REACTIONS (1)
  - Drug ineffective [Unknown]
